FAERS Safety Report 15774214 (Version 1)
Quarter: 2018Q4

REPORT INFORMATION
  Report Type: Spontaneous
  Country: US (occurrence: US)
  Receive Date: 20181229
  Receipt Date: 20181229
  Transmission Date: 20190205
  Serious: Yes (Death, Hospitalization, Other)
  Sender: FDA-Public Use
  Company Number: US-AUROBINDO-AUR-APL-2018-062186

PATIENT
  Age: 47 Year
  Sex: Male

DRUGS (1)
  1. SERTRALINE [Suspect]
     Active Substance: SERTRALINE HYDROCHLORIDE
     Indication: PRODUCT USED FOR UNKNOWN INDICATION
     Dosage: UNK
     Route: 065

REACTIONS (6)
  - Completed suicide [Fatal]
  - Skin discolouration [Fatal]
  - Blister [Fatal]
  - Hyperhidrosis [Fatal]
  - Cardiac arrest [Fatal]
  - Unresponsive to stimuli [Unknown]
